FAERS Safety Report 19098322 (Version 1)
Quarter: 2021Q2

REPORT INFORMATION
  Report Type: Report from Study
  Country: US (occurrence: US)
  Receive Date: 20210406
  Receipt Date: 20210406
  Transmission Date: 20210717
  Serious: No
  Sender: FDA-Public Use
  Company Number: NVSC2021US077807

PATIENT
  Sex: Male

DRUGS (1)
  1. ENTRESTO [Suspect]
     Active Substance: SACUBITRIL\VALSARTAN
     Indication: PRODUCT USED FOR UNKNOWN INDICATION
     Dosage: UNK UNK, BID
     Route: 065
     Dates: start: 202011

REACTIONS (5)
  - Dysuria [Not Recovered/Not Resolved]
  - Product dose omission issue [Unknown]
  - Paraesthesia [Unknown]
  - Hypoaesthesia [Unknown]
  - Balance disorder [Unknown]

NARRATIVE: CASE EVENT DATE: 2020
